FAERS Safety Report 18386924 (Version 1)
Quarter: 2020Q4

REPORT INFORMATION
  Report Type: Spontaneous
  Country: US (occurrence: US)
  Receive Date: 20201014
  Receipt Date: 20201014
  Transmission Date: 20210114
  Serious: Yes (Hospitalization)
  Sender: FDA-Public Use
  Company Number: None

PATIENT
  Age: 21 Year
  Sex: Female

DRUGS (1)
  1. HUMIRA [Suspect]
     Active Substance: ADALIMUMAB
     Indication: PSORIATIC ARTHROPATHY
     Dosage: ?          OTHER DOSE:1 SYR;?
     Route: 058
     Dates: start: 20200213

REACTIONS (3)
  - Illness [None]
  - Sinus disorder [None]
  - Therapy interrupted [None]

NARRATIVE: CASE EVENT DATE: 20200714
